FAERS Safety Report 10065215 (Version 2)
Quarter: 2014Q4

REPORT INFORMATION
  Report Type: Report from Study
  Country: FR (occurrence: FR)
  Receive Date: 20140408
  Receipt Date: 20141021
  Transmission Date: 20150528
  Serious: Yes (Death)
  Sender: FDA-Public Use
  Company Number: FR-ACTELION-A-CH2014-96783

PATIENT
  Age: 6 Year
  Sex: Female
  Weight: 8.8 kg

DRUGS (5)
  1. ZAVESCA [Suspect]
     Active Substance: MIGLUSTAT
     Dosage: 200 MG, BID
     Route: 048
  2. ZAVESCA [Suspect]
     Active Substance: MIGLUSTAT
     Indication: NIEMANN-PICK DISEASE
     Dosage: 100 MG, BID
     Route: 048
     Dates: end: 20131001
  3. ZAVESCA [Suspect]
     Active Substance: MIGLUSTAT
     Dosage: 100 MG, OD
     Route: 048
     Dates: start: 20131007, end: 20140308
  4. ZAVESCA [Suspect]
     Active Substance: MIGLUSTAT
     Dosage: 100 MG, BID
     Route: 048
     Dates: start: 20090722
  5. ZAVESCA [Suspect]
     Active Substance: MIGLUSTAT
     Dosage: 100 MG, BID
     Route: 048
     Dates: end: 20130701

REACTIONS (1)
  - Death [Fatal]

NARRATIVE: CASE EVENT DATE: 20140308
